FAERS Safety Report 21144191 (Version 1)
Quarter: 2022Q3

REPORT INFORMATION
  Report Type: Spontaneous
  Country: US (occurrence: None)
  Receive Date: 20220728
  Receipt Date: 20220728
  Transmission Date: 20221027
  Serious: Yes (Other)
  Sender: FDA-Public Use
  Company Number: None

PATIENT
  Age: 41 Year
  Sex: Female
  Weight: 75.15 kg

DRUGS (2)
  1. PAXLOVID [Suspect]
     Active Substance: NIRMATRELVIR\RITONAVIR
     Indication: COVID-19
     Dosage: FREQUENCY : TWICE A DAY;?
     Route: 048
     Dates: start: 20220725, end: 20220725
  2. PREDNISONE [Concomitant]
     Active Substance: PREDNISONE
     Dates: start: 20220725

REACTIONS (3)
  - Throat tightness [None]
  - Mouth swelling [None]
  - Swollen tongue [None]

NARRATIVE: CASE EVENT DATE: 20220725
